FAERS Safety Report 16412675 (Version 5)
Quarter: 2019Q3

REPORT INFORMATION
  Report Type: Spontaneous
  Country: CZ (occurrence: CZ)
  Receive Date: 20190611
  Receipt Date: 20190830
  Transmission Date: 20191004
  Serious: Yes (Other)
  Sender: FDA-Public Use
  Company Number: CZ-AUROBINDO-AUR-APL-2019-033421

PATIENT

DRUGS (27)
  1. LENALIDOMIDE [Suspect]
     Active Substance: LENALIDOMIDE
     Dosage: 4200 MILLIGRAM
     Route: 065
  2. LENALIDOMIDE [Suspect]
     Active Substance: LENALIDOMIDE
     Dosage: UNK, MAXIMUM CUMULATIVE DOSE OF 4200 MG; 8 CYCLES
     Route: 065
  3. METHYLPREDNISOLONE. [Suspect]
     Active Substance: METHYLPREDNISOLONE
     Indication: PROPHYLAXIS
     Dosage: UNK, 125 MG
     Route: 042
  4. BORTEZOMIB. [Suspect]
     Active Substance: BORTEZOMIB
     Dosage: 3 MILLIGRAM/SQ. METER, 1 MONTH
     Route: 065
  5. CYCLOPHOSPHAMIDE. [Suspect]
     Active Substance: CYCLOPHOSPHAMIDE
     Dosage: UNK, DOSAGE FORM: UNSPECIFIED,
     Route: 065
     Dates: start: 201206
  6. CLONAZEPAM. [Concomitant]
     Active Substance: CLONAZEPAM
     Indication: DEPRESSION
     Dosage: UNK
     Route: 065
  7. MELPHALAN. [Suspect]
     Active Substance: MELPHALAN
     Indication: PLASMA CELL MYELOMA
     Dosage: 100 MILLIGRAM/SQ. METER
     Route: 065
  8. PARACETAMOL [Suspect]
     Active Substance: ACETAMINOPHEN
     Indication: PROPHYLAXIS
     Dosage: UNK, 1000 MG
     Route: 048
  9. THALIDOMIDE [Suspect]
     Active Substance: THALIDOMIDE
     Indication: PLASMA CELL MYELOMA
     Dosage: UNK, DOSAGE FORM: UNSPECIFIED, 3 CYCLES
     Route: 065
  10. CYCLOPHOSPHAMIDE. [Suspect]
     Active Substance: CYCLOPHOSPHAMIDE
     Indication: PLASMA CELL MYELOMA
     Dosage: UNK, DOSAGE FORM: UNSPECIFIED, 9 CYCLES
     Route: 065
     Dates: start: 201111
  11. BORTEZOMIB. [Suspect]
     Active Substance: BORTEZOMIB
     Indication: PLASMA CELL MYELOMA
     Dosage: 1 MILLIGRAM/SQ. METER, 1 MONTH
     Route: 065
  12. BORTEZOMIB. [Suspect]
     Active Substance: BORTEZOMIB
     Dosage: 1.3 MILLIGRAM/SQ. METER, 1 WEEK
     Route: 065
     Dates: start: 201111
  13. CETIRIZINE [Concomitant]
     Active Substance: CETIRIZINE HYDROCHLORIDE
     Indication: PROPHYLAXIS
     Dosage: UNK
     Route: 048
  14. LENALIDOMIDE [Suspect]
     Active Substance: LENALIDOMIDE
     Indication: PLASMA CELL MYELOMA
     Dosage: UNK, STANDARD DOSE
     Route: 065
  15. PREDNISONE. [Suspect]
     Active Substance: PREDNISONE
     Dosage: UNK, 8 CYCLES
     Route: 065
  16. DEXAMETHASONE. [Suspect]
     Active Substance: DEXAMETHASONE
     Dosage: UNK
     Route: 065
     Dates: start: 201206
  17. DARATUMUMAB [Suspect]
     Active Substance: DARATUMUMAB
     Indication: PLASMA CELL MYELOMA
     Dosage: UNK, DOSE OF 16 MG/KG
     Route: 042
     Dates: start: 201605
  18. DEXAMETHASONE. [Suspect]
     Active Substance: DEXAMETHASONE
     Indication: PLASMA CELL MYELOMA
     Dosage: UNK, DOSAGE FORM: UNSPECIFIED, 3 CYCLES
     Route: 065
     Dates: start: 201111
  19. MELPHALAN. [Suspect]
     Active Substance: MELPHALAN
     Dosage: WAS USED AS A PRE-TREATMENT REGIMEN 200 MILLIGRAM/SQ. METER
     Route: 065
  20. THALIDOMIDE [Suspect]
     Active Substance: THALIDOMIDE
     Dosage: UNK, 3 CYCLES
     Route: 065
  21. POMALIDOMIDE [Suspect]
     Active Substance: POMALIDOMIDE
     Dosage: UNK, 3 CYCLES
     Route: 065
  22. PREDNISONE. [Suspect]
     Active Substance: PREDNISONE
     Indication: PLASMA CELL MYELOMA
     Dosage: UNK, DOSAGE FORM: UNSPECIFIED, 8 CYCLES
     Route: 065
  23. BORTEZOMIB. [Suspect]
     Active Substance: BORTEZOMIB
     Indication: PLASMA CELL MYELOMA
     Dosage: 1 MILLIGRAM/SQ. METER
     Route: 065
  24. BORTEZOMIB. [Suspect]
     Active Substance: BORTEZOMIB
     Dosage: 1.3 MILLIGRAM/SQ. METER, 1 WEEK
     Route: 065
     Dates: start: 201111
  25. BORTEZOMIB. [Suspect]
     Active Substance: BORTEZOMIB
     Dosage: 3 MILLIGRAM/SQ. METER
     Route: 065
  26. ESCITALOPRAM [Concomitant]
     Active Substance: ESCITALOPRAM OXALATE
     Indication: DEPRESSION
     Dosage: UNK
     Route: 065
  27. POMALIDOMIDE [Suspect]
     Active Substance: POMALIDOMIDE
     Indication: PLASMA CELL MYELOMA
     Dosage: UNK, DOSAGE FORM: UNSPECIFIED, 3 CYCLES
     Route: 065

REACTIONS (14)
  - Suicidal ideation [Unknown]
  - Therapy non-responder [Unknown]
  - Depression [Unknown]
  - Infection [Unknown]
  - Polyneuropathy [Unknown]
  - Therapy partial responder [Unknown]
  - Toxicity to various agents [Unknown]
  - Off label use [Unknown]
  - Plasma cell myeloma [Unknown]
  - Drug ineffective [Unknown]
  - Malignant neoplasm progression [Unknown]
  - Disease progression [Unknown]
  - Renal failure [Unknown]
  - Product use issue [Unknown]

NARRATIVE: CASE EVENT DATE: 2011
